FAERS Safety Report 6495158-7 (Version None)
Quarter: 2009Q4

REPORT INFORMATION
  Report Type: 
  Country: None (occurrence: None)
  Receive Date: 20091214
  Receipt Date: 20090507
  Transmission Date: 20100525
  Serious: No
  Sender: FDA-Public Use
  Company Number: US-BRISTOL-MYERS SQUIBB COMPANY-14615421

PATIENT
  Age: 10 Year
  Sex: Male
  Weight: 32 kg

DRUGS (4)
  1. ABILIFY [Suspect]
     Indication: AUTISM
     Dosage: STARTED AS 5MG ON 16NOV06 INCREASED TO 10MG  ON 06JUN08 INCREASED TO 15MG  23APR09 REDUCED TO 5MG
     Dates: start: 20061129
  2. ABILIFY [Suspect]
     Indication: ATTENTION DEFICIT/HYPERACTIVITY DISORDER
     Dosage: STARTED AS 5MG ON 16NOV06 INCREASED TO 10MG  ON 06JUN08 INCREASED TO 15MG  23APR09 REDUCED TO 5MG
     Dates: start: 20061129
  3. ABILIFY [Suspect]
     Indication: INTERMITTENT EXPLOSIVE DISORDER
     Dosage: STARTED AS 5MG ON 16NOV06 INCREASED TO 10MG  ON 06JUN08 INCREASED TO 15MG  23APR09 REDUCED TO 5MG
     Dates: start: 20061129
  4. CLOMIPRAMINE [Concomitant]

REACTIONS (1)
  - TIC [None]
